FAERS Safety Report 15506300 (Version 4)
Quarter: 2019Q3

REPORT INFORMATION
  Report Type: Spontaneous
  Country: US (occurrence: US)
  Receive Date: 20181016
  Receipt Date: 20190730
  Transmission Date: 20191004
  Serious: Yes (Hospitalization)
  Sender: FDA-Public Use
  Company Number: PHEH2018US043326

PATIENT
  Age: 50 Year
  Sex: Female

DRUGS (4)
  1. TYKERB [Suspect]
     Active Substance: LAPATINIB DITOSYLATE
     Indication: BREAST CANCER
     Dosage: 4 DF, QD
     Route: 048
  2. TYKERB [Suspect]
     Active Substance: LAPATINIB DITOSYLATE
     Dosage: 750 DF, QD (3 TABLET)
     Route: 048
  3. XELODA [Suspect]
     Active Substance: CAPECITABINE
     Indication: BREAST CANCER FEMALE
     Dosage: 6 DF, QD
     Route: 065
  4. TYKERB [Suspect]
     Active Substance: LAPATINIB DITOSYLATE
     Indication: BREAST CANCER FEMALE
     Dosage: 1250 MG, QD (5 TABLET)
     Route: 048
     Dates: start: 20180925

REACTIONS (10)
  - Loss of consciousness [Recovering/Resolving]
  - Epistaxis [Recovering/Resolving]
  - Syncope [Unknown]
  - Blood glucose decreased [Unknown]
  - Haemoglobin decreased [Recovering/Resolving]
  - Thyroid hormones decreased [Recovering/Resolving]
  - Hypotension [Unknown]
  - White blood cell count decreased [Recovering/Resolving]
  - Fatigue [Recovering/Resolving]
  - Stomatitis [Unknown]

NARRATIVE: CASE EVENT DATE: 20181222
